FAERS Safety Report 11065765 (Version 1)
Quarter: 2015Q2

REPORT INFORMATION
  Report Type: Report from Study
  Country: US (occurrence: None)
  Receive Date: 20150423
  Receipt Date: 20150423
  Transmission Date: 20150821
  Serious: Yes (Death, Other)
  Sender: FDA-Public Use
  Company Number: 2015-11109

PATIENT
  Age: 65 Year
  Sex: Female

DRUGS (10)
  1. SIMVASTATIN (SIMVASTATIN) [Concomitant]
     Active Substance: SIMVASTATIN
  2. AMLODIPINE [Concomitant]
     Active Substance: AMLODIPINE BESYLATE
  3. METOPROLOL [Concomitant]
     Active Substance: METOPROLOL
  4. HYDROCHLOROTHIAZID (HYDROCHLOROTHIAZIDE) [Concomitant]
  5. CLONIDINE. [Concomitant]
     Active Substance: CLONIDINE
  6. EYLEA [Suspect]
     Active Substance: AFLIBERCEPT
     Indication: DIABETIC RETINAL OEDEMA
     Dosage: IN BOTH EYES
     Route: 031
     Dates: start: 20141121
  7. PLAVIX (CLOPIDOGREL BISULFATE) [Concomitant]
  8. NOVOLOG [Concomitant]
     Active Substance: INSULIN ASPART
  9. LEVEMIR (INSULIN DETERMIR) [Concomitant]
  10. LOSARTAN [Concomitant]
     Active Substance: LOSARTAN

REACTIONS (1)
  - Diabetic complication [None]

NARRATIVE: CASE EVENT DATE: 20150311
